FAERS Safety Report 7353494-6 (Version None)
Quarter: 2011Q1

REPORT INFORMATION
  Report Type: 
  Country: None (occurrence: None)
  Receive Date: 20110315
  Receipt Date: 20110303
  Transmission Date: 20110831
  Serious: Yes (Other)
  Sender: FDA-Public Use
  Company Number: FI-JNJFOC-20110104957

PATIENT
  Age: 3 Year
  Sex: Female

DRUGS (8)
  1. CORTISONE [Concomitant]
     Route: 047
  2. FOLIC ACID [Concomitant]
  3. PANADOL [Concomitant]
  4. REMICADE [Suspect]
     Indication: IRITIS
     Route: 042
  5. METHOTREXATE [Concomitant]
     Route: 048
  6. PRONAXEN [Concomitant]
  7. REMICADE [Suspect]
     Route: 042
  8. REMICADE [Suspect]
     Route: 042

REACTIONS (6)
  - STEVENS-JOHNSON SYNDROME [None]
  - ENTEROVIRUS INFECTION [None]
  - INFECTION [None]
  - ANAEMIA HAEMOLYTIC AUTOIMMUNE [None]
  - MORAXELLA INFECTION [None]
  - VIRAL INFECTION [None]
